FAERS Safety Report 24445081 (Version 2)
Quarter: 2024Q4

REPORT INFORMATION
  Report Type: Spontaneous
  Country: US (occurrence: US)
  Receive Date: 20241016
  Receipt Date: 20241018
  Transmission Date: 20250114
  Serious: Yes (Life-Threatening)
  Sender: PFIZER
  Company Number: US-MLMSERVICE-20241002-PI215944-00270-1

PATIENT
  Age: 29 Year
  Sex: Male

DRUGS (9)
  1. METHYLPREDNISOLONE ACETATE [Suspect]
     Active Substance: METHYLPREDNISOLONE ACETATE
     Indication: Immunosuppressant drug therapy
     Dosage: 500 MG (WITH A BLOOD TROUGH GOAL OF 8-10 NG/ML)
  2. ROCURONIUM [Concomitant]
     Active Substance: ROCURONIUM BROMIDE
     Indication: Preoperative care
     Dosage: UNK
  3. INSULIN NOS [Concomitant]
     Active Substance: INSULIN NOS
     Indication: Type 1 diabetes mellitus
     Dosage: FREQ: 1 H
     Route: 042
  4. LIDOCAINE [Concomitant]
     Active Substance: LIDOCAINE
     Indication: Preoperative care
     Dosage: UNK
  5. TACROLIMUS [Concomitant]
     Active Substance: TACROLIMUS
     Indication: Immunosuppressant drug therapy
     Dosage: WITH A BLOOD TROUGH GOAL OF 8-10 NG/ML
  6. MIDAZOLAM [Concomitant]
     Active Substance: MIDAZOLAM
     Indication: Preoperative care
     Dosage: UNK
  7. FENTANYL [Concomitant]
     Active Substance: FENTANYL
     Indication: Preoperative care
     Dosage: UNK
  8. PROPOFOL [Concomitant]
     Active Substance: PROPOFOL
     Indication: Preoperative care
     Dosage: UNK
  9. PIPERACILLIN AND TAZOBACTAM [Concomitant]
     Active Substance: PIPERACILLIN SODIUM\TAZOBACTAM SODIUM
     Indication: Intraoperative care
     Dosage: ADMINISTERED EVERY TWO HOURS INTRAOPERATIVELY PER STANDARD DOSING

REACTIONS (1)
  - Hyperglycaemia [Recovered/Resolved]
